FAERS Safety Report 16010975 (Version 1)
Quarter: 2019Q1

REPORT INFORMATION
  Report Type: Spontaneous
  Country: US (occurrence: US)
  Receive Date: 20190227
  Receipt Date: 20190227
  Transmission Date: 20190418
  Serious: No
  Sender: FDA-Public Use
  Company Number: US-009507513-1902USA005257

PATIENT
  Age: 28 Year
  Sex: Male

DRUGS (6)
  1. SENNA [Concomitant]
     Active Substance: SENNA LEAF\SENNOSIDES\SENNOSIDES A AND B
     Indication: CONSTIPATION
     Dosage: TWO TABLETS AT NIGHT
     Route: 048
  2. REMERON [Suspect]
     Active Substance: MIRTAZAPINE
     Indication: ANXIETY
  3. POLYETHYLENE GLYCOL [Concomitant]
     Active Substance: POLYETHYLENE GLYCOLS
     Indication: CONSTIPATION
     Dosage: 17 GRAM, QD
  4. REMERON [Suspect]
     Active Substance: MIRTAZAPINE
     Indication: AGGRESSION
     Dosage: AT BEDTIME
  5. LAMOTRIGINE. [Concomitant]
     Active Substance: LAMOTRIGINE
     Indication: SEIZURE
     Dosage: 100 MG IN THE MORNING AND 100 MG AT NIGHT
  6. LEVOTHYROXINE SODIUM. [Concomitant]
     Active Substance: LEVOTHYROXINE SODIUM
     Indication: HYPOTHYROIDISM
     Dosage: AT NIGHT

REACTIONS (2)
  - Weight increased [Unknown]
  - Off label use [Unknown]
